FAERS Safety Report 15553742 (Version 1)
Quarter: 2018Q4

REPORT INFORMATION
  Report Type: Spontaneous
  Country: US (occurrence: US)
  Receive Date: 20181026
  Receipt Date: 20181026
  Transmission Date: 20190205
  Serious: Yes (Other)
  Sender: FDA-Public Use
  Company Number: US-SA-2018SA073836

PATIENT
  Age: 53 Year
  Sex: Female
  Weight: 77.11 kg

DRUGS (3)
  1. TAXOTERE [Suspect]
     Active Substance: DOCETAXEL
     Dosage: 75 MG,Q3W
     Route: 042
     Dates: start: 20060903, end: 20060903
  2. ACTINOMYCIN D [Concomitant]
     Active Substance: DACTINOMYCIN
     Dosage: UNK UNK, UNK
     Route: 065
  3. TAXOTERE [Suspect]
     Active Substance: DOCETAXEL
     Indication: BREAST CANCER
     Dosage: 75 MG,Q3W
     Route: 042
     Dates: start: 20081215, end: 20081215

REACTIONS (2)
  - Psychological trauma [Unknown]
  - Alopecia [Recovering/Resolving]

NARRATIVE: CASE EVENT DATE: 200609
